FAERS Safety Report 15349632 (Version 2)
Quarter: 2018Q3

REPORT INFORMATION
  Report Type: Spontaneous
  Country: US (occurrence: US)
  Receive Date: 20180904
  Receipt Date: 20180913
  Transmission Date: 20181010
  Serious: Yes (Other)
  Sender: FDA-Public Use
  Company Number: US-MALLINCKRODT-T201803751

PATIENT
  Age: 56 Year
  Sex: Female

DRUGS (4)
  1. HEPARIN [Concomitant]
     Active Substance: HEPARIN SODIUM
     Indication: ANTICOAGULANT THERAPY
     Dosage: 10,000 UNITS IN 500 ML NORMAL SALINE
     Route: 065
  2. UVADEX [Suspect]
     Active Substance: METHOXSALEN
     Indication: GRAFT VERSUS HOST DISEASE
     Dosage: UNK, TWICE WEEKLY
     Route: 057
  3. UVADEX [Suspect]
     Active Substance: METHOXSALEN
     Dosage: TWO TREATMENTS EVERY OTHER WEEK
     Route: 057
     Dates: start: 20180105
  4. UVADEX [Suspect]
     Active Substance: METHOXSALEN
     Dosage: UNK, ONCE WEEKLY
     Route: 057
     Dates: start: 2018, end: 2018

REACTIONS (2)
  - Product use in unapproved indication [Unknown]
  - Anaemia [Recovering/Resolving]

NARRATIVE: CASE EVENT DATE: 20180615
